FAERS Safety Report 8090845-1 (Version None)
Quarter: 2012Q1

REPORT INFORMATION
  Report Type: 
  Country: None (occurrence: None)
  Receive Date: 20120125
  Receipt Date: 20120110
  Transmission Date: 20120608
  Serious: Yes (Other)
  Sender: FDA-Public Use
  Company Number: US-1189123

PATIENT
  Age: 78 Year
  Sex: Male
  Weight: 72.5755 kg

DRUGS (8)
  1. NEVANAC [Suspect]
     Indication: CATARACT OPERATION
     Dosage: (OPHTHALMIC)
     Route: 047
  2. POVIDONE IODINE [Concomitant]
  3. BSS [Suspect]
     Indication: CATARACT OPERATION
     Dosage: (INTRAOCULAR), ((INTRAOCULAR)
     Route: 031
     Dates: start: 20111021, end: 20111021
  4. BSS [Suspect]
     Indication: CATARACT OPERATION
     Dosage: (INTRAOCULAR), ((INTRAOCULAR)
     Route: 031
     Dates: start: 20111021, end: 20111021
  5. BSS [Suspect]
  6. VIGAMOX [Suspect]
     Indication: CATARACT OPERATION
     Dosage: (OPHTHALMIC)
     Route: 047
  7. OMNIPRED [Suspect]
     Indication: CATARACT OPERATION
     Dosage: (OPHTHALMIC)
     Route: 047
  8. TETRACAINE POLYGYL STERILE OPHTHALMIC SOLUTION [Suspect]
     Indication: CATARACT OPERATION
     Dosage: (OPHTHALMIC)
     Route: 047
     Dates: start: 20111021, end: 20111021

REACTIONS (2)
  - TOXIC ANTERIOR SEGMENT SYNDROME [None]
  - POST PROCEDURAL COMPLICATION [None]
